FAERS Safety Report 9147657 (Version 1)
Quarter: 2013Q1

REPORT INFORMATION
  Report Type: Spontaneous
  Country: CA (occurrence: CA)
  Receive Date: 20130307
  Receipt Date: 20130307
  Transmission Date: 20140127
  Serious: Yes (Other)
  Sender: FDA-Public Use
  Company Number: CA-JNJFOC-20130301621

PATIENT
  Sex: Female

DRUGS (3)
  1. INTELENCE [Suspect]
     Indication: ANTIVIRAL TREATMENT
     Route: 048
  2. MARAVIROC [Suspect]
     Indication: ANTIVIRAL TREATMENT
     Route: 065
  3. RALTEGRAVIR [Suspect]
     Indication: ANTIVIRAL TREATMENT
     Route: 065

REACTIONS (2)
  - Diabetes mellitus inadequate control [Unknown]
  - Weight increased [Unknown]
